FAERS Safety Report 19093986 (Version 23)
Quarter: 2022Q2

REPORT INFORMATION
  Report Type: Report from Study
  Country: CN (occurrence: None)
  Receive Date: 20210405
  Receipt Date: 20220601
  Transmission Date: 20220721
  Serious: Yes (Hospitalization)
  Sender: FDA-Public Use
  Company Number: CN-ROCHE-2796984

PATIENT
  Age: 68 Year
  Sex: Male
  Weight: 70 kg

DRUGS (109)
  1. PLACEBO [Suspect]
     Active Substance: UNSPECIFIED INGREDIENT
     Indication: Small cell lung cancer
     Dosage: ON 16/MAR/2021, HE RECEIVED MOST RECENT DOSE OF BLINDED MTIG 7192A PRIOR TO EVENT ONSET.?ON 06/MAY/2
     Route: 042
     Dates: start: 20210316
  2. ATEZOLIZUMAB [Suspect]
     Active Substance: ATEZOLIZUMAB
     Indication: Small cell lung cancer
     Dosage: ON 16/MAR/2021, HE RECEIVED MOST RECENT DOSE OF (1200 MG) OF ATEZOLIZUMAB PRIOR TO EVENT ONSET.?ON 0
     Route: 041
     Dates: start: 20210316
  3. ATEZOLIZUMAB [Suspect]
     Active Substance: ATEZOLIZUMAB
     Indication: Myelosuppression
  4. CARBOPLATIN [Suspect]
     Active Substance: CARBOPLATIN
     Indication: Small cell lung cancer
     Dosage: ON 16/MAR/2021, HE RECEIVED MOST RECENT DOSE OF (540 MG) OF CARBOPLATIN PRIOR TO EVENT ONSET.?ON 06/
     Route: 042
     Dates: start: 20210316
  5. ETOPOSIDE [Suspect]
     Active Substance: ETOPOSIDE
     Indication: Small cell lung cancer
     Dosage: ON 18/MAR/2021, HE RECEIVED MOST RECENT DOSE OF (160 MG) OF ETOPOSIDE PRIOR TO EVENT ONSET.?ON 08/MA
     Route: 042
     Dates: start: 20210316
  6. FUROSEMIDE [Concomitant]
     Active Substance: FUROSEMIDE
     Indication: Polyuria
     Route: 065
     Dates: start: 20210316, end: 20210316
  7. FUROSEMIDE [Concomitant]
     Active Substance: FUROSEMIDE
     Dates: start: 20210316, end: 20210316
  8. FUROSEMIDE [Concomitant]
     Active Substance: FUROSEMIDE
     Dates: start: 20210319, end: 20210319
  9. FUROSEMIDE [Concomitant]
     Active Substance: FUROSEMIDE
     Dates: start: 20210401, end: 20210515
  10. FUROSEMIDE [Concomitant]
     Active Substance: FUROSEMIDE
     Dates: start: 20210407, end: 20210407
  11. FUROSEMIDE [Concomitant]
     Active Substance: FUROSEMIDE
     Dates: start: 20210408, end: 20210408
  12. FUROSEMIDE [Concomitant]
     Active Substance: FUROSEMIDE
     Dates: start: 20210506, end: 20210506
  13. FUROSEMIDE [Concomitant]
     Active Substance: FUROSEMIDE
     Dates: start: 20210608, end: 20210610
  14. FUROSEMIDE [Concomitant]
     Active Substance: FUROSEMIDE
     Route: 048
     Dates: start: 20210325, end: 20210325
  15. FUROSEMIDE [Concomitant]
     Active Substance: FUROSEMIDE
     Route: 048
     Dates: start: 20210327, end: 20210327
  16. FUROSEMIDE [Concomitant]
     Active Substance: FUROSEMIDE
     Dosage: GIVEN FOR PROPHYLAXIS : YES
     Route: 048
     Dates: start: 20210319, end: 20210322
  17. FUROSEMIDE [Concomitant]
     Active Substance: FUROSEMIDE
     Route: 048
     Dates: start: 20210319, end: 20210322
  18. ZOLPIDEM TARTRATE [Concomitant]
     Active Substance: ZOLPIDEM TARTRATE
     Dates: start: 20210310, end: 20210324
  19. ZOLPIDEM TARTRATE [Concomitant]
     Active Substance: ZOLPIDEM TARTRATE
     Dates: start: 20210602, end: 20210602
  20. OXYCODONE [Concomitant]
     Active Substance: OXYCODONE
     Indication: Analgesic therapy
     Dates: start: 20210315, end: 20210326
  21. NIFEDIPINE SUSTAINED RELEASE TABLETS (I) [Concomitant]
     Indication: Blood pressure measurement
     Dates: start: 20210317, end: 20210324
  22. NIFEDIPINE SUSTAINED RELEASE TABLETS (I) [Concomitant]
     Dates: start: 20210407, end: 20210407
  23. NIFEDIPINE SUSTAINED RELEASE TABLETS (I) [Concomitant]
     Route: 048
     Dates: start: 20210315, end: 20210316
  24. NIFEDIPINE SUSTAINED RELEASE TABLETS (I) [Concomitant]
     Dates: start: 20210625
  25. ASPIRIN [Concomitant]
     Active Substance: ASPIRIN
     Route: 048
     Dates: start: 20210319, end: 20210324
  26. ASPIRIN [Concomitant]
     Active Substance: ASPIRIN
     Route: 048
     Dates: start: 20210320, end: 20210320
  27. ASPIRIN [Concomitant]
     Active Substance: ASPIRIN
     Dates: start: 20210518
  28. ATORVASTATIN CALCIUM [Concomitant]
     Active Substance: ATORVASTATIN CALCIUM
     Route: 048
     Dates: start: 20210320, end: 20210324
  29. POTASSIUM CHLORIDE [Concomitant]
     Active Substance: POTASSIUM CHLORIDE
     Dosage: SUSTAINED-RELEASE TABLETS
     Dates: start: 20210319, end: 20210326
  30. POTASSIUM CHLORIDE [Concomitant]
     Active Substance: POTASSIUM CHLORIDE
     Dosage: SUSTAINED-RELEASE TABLETS
     Dates: start: 20210316, end: 20210317
  31. LANSOPRAZOLE [Concomitant]
     Active Substance: LANSOPRAZOLE
     Route: 048
     Dates: start: 20210320, end: 20210326
  32. LANSOPRAZOLE [Concomitant]
     Active Substance: LANSOPRAZOLE
     Dates: start: 20210320, end: 20210320
  33. TANSULOSINA [Concomitant]
     Indication: Benign prostatic hyperplasia
     Dosage: SUSTAINED RELEASE CAPSULE
     Route: 048
     Dates: start: 20210322, end: 20210322
  34. TANSULOSINA [Concomitant]
     Dosage: SUSTAINED RELEASE CAPSULE
     Route: 048
     Dates: start: 20210318, end: 20210318
  35. IMIPENEM AND CILASTATIN SODIUM [Concomitant]
     Active Substance: CILASTATIN SODIUM\IMIPENEM
     Route: 042
     Dates: start: 20210324, end: 20210330
  36. GLUTATHIONE [Concomitant]
     Active Substance: GLUTATHIONE
     Dates: start: 20210324, end: 20210329
  37. PHOSPHOLIPID [Concomitant]
     Active Substance: PHOSPHOLIPID
     Dates: start: 20210324, end: 20210329
  38. BACILLUS LICHENIFORMIS CAPSULE,LIVE [Concomitant]
     Dates: start: 20210325, end: 20210325
  39. BACILLUS LICHENIFORMIS CAPSULE,LIVE [Concomitant]
     Dates: start: 20210325, end: 20210329
  40. SPIRONOLACTONE [Concomitant]
     Active Substance: SPIRONOLACTONE
     Route: 048
     Dates: start: 20210320, end: 20210322
  41. SPIRONOLACTONE [Concomitant]
     Active Substance: SPIRONOLACTONE
     Route: 048
     Dates: start: 20210326, end: 20210329
  42. SPIRONOLACTONE [Concomitant]
     Active Substance: SPIRONOLACTONE
     Dates: start: 20210328, end: 20210401
  43. SPIRONOLACTONE [Concomitant]
     Active Substance: SPIRONOLACTONE
     Dates: start: 20210402, end: 20210515
  44. APREPITANT [Concomitant]
     Active Substance: APREPITANT
     Dates: start: 20210316, end: 20210318
  45. APREPITANT [Concomitant]
     Active Substance: APREPITANT
     Dates: start: 20210407, end: 20210409
  46. APREPITANT [Concomitant]
     Active Substance: APREPITANT
     Dates: start: 20210506, end: 20210508
  47. TROPISETRON HYDROCHLORIDE [Concomitant]
     Active Substance: TROPISETRON HYDROCHLORIDE
     Dates: start: 20210316, end: 20210318
  48. TROPISETRON HYDROCHLORIDE [Concomitant]
     Active Substance: TROPISETRON HYDROCHLORIDE
     Dates: start: 20210407, end: 20210409
  49. TROPISETRON HYDROCHLORIDE [Concomitant]
     Active Substance: TROPISETRON HYDROCHLORIDE
     Dates: start: 20210506, end: 20210506
  50. DEXAMETHASONE SODIUM PHOSPHATE [Concomitant]
     Active Substance: DEXAMETHASONE SODIUM PHOSPHATE
     Route: 042
     Dates: start: 20210316, end: 20210316
  51. DEXAMETHASONE SODIUM PHOSPHATE [Concomitant]
     Active Substance: DEXAMETHASONE SODIUM PHOSPHATE
     Route: 042
     Dates: start: 20210407, end: 20210407
  52. DEXAMETHASONE SODIUM PHOSPHATE [Concomitant]
     Active Substance: DEXAMETHASONE SODIUM PHOSPHATE
     Route: 042
     Dates: start: 20210506, end: 20210506
  53. DEXAMETHASONE SODIUM PHOSPHATE [Concomitant]
     Active Substance: DEXAMETHASONE SODIUM PHOSPHATE
     Route: 042
     Dates: start: 20210608, end: 20210608
  54. NIFEDIPINE [Concomitant]
     Active Substance: NIFEDIPINE
     Indication: Blood pressure measurement
     Dates: start: 20210316, end: 20210317
  55. NIFEDIPINE [Concomitant]
     Active Substance: NIFEDIPINE
     Dosage: SUSTAIN-RELEASED TABLET
     Dates: start: 20210407, end: 20210407
  56. NIFEDIPINE [Concomitant]
     Active Substance: NIFEDIPINE
     Dates: start: 20210608, end: 20210608
  57. NIFEDIPINE [Concomitant]
     Active Substance: NIFEDIPINE
     Dates: start: 20210625
  58. FINASTERIDE [Concomitant]
     Active Substance: FINASTERIDE
     Indication: Benign prostatic hyperplasia
     Route: 048
     Dates: start: 20210317, end: 20210317
  59. FINASTERIDE [Concomitant]
     Active Substance: FINASTERIDE
     Dates: start: 20210324, end: 20210324
  60. NITROGLYCERIN [Concomitant]
     Active Substance: NITROGLYCERIN
     Route: 042
     Dates: start: 20210319, end: 20210319
  61. NITROGLYCERIN [Concomitant]
     Active Substance: NITROGLYCERIN
     Dates: start: 20210602, end: 20210602
  62. NITROGLYCERIN [Concomitant]
     Active Substance: NITROGLYCERIN
     Dates: start: 20210610, end: 20210610
  63. NITROGLYCERIN [Concomitant]
     Active Substance: NITROGLYCERIN
     Dates: start: 20210601, end: 20210601
  64. METOCLOPRAMIDE HYDROCHLORIDE [Concomitant]
     Active Substance: METOCLOPRAMIDE HYDROCHLORIDE
     Dates: start: 20210319, end: 20210319
  65. METOCLOPRAMIDE HYDROCHLORIDE [Concomitant]
     Active Substance: METOCLOPRAMIDE HYDROCHLORIDE
     Dates: start: 20210324, end: 20210325
  66. CEFUROXIME [Concomitant]
     Active Substance: CEFUROXIME
     Dosage: PLUG CRUNCHING OF CORNFLAKES
     Route: 048
     Dates: start: 20210319, end: 20210321
  67. CEFUROXIME [Concomitant]
     Active Substance: CEFUROXIME
     Dosage: PLUG CRUNCHING OF CORNFLAKES
     Route: 048
     Dates: start: 20210325, end: 20210325
  68. CEFUROXIME [Concomitant]
     Active Substance: CEFUROXIME
     Dosage: PLUG CRUNCHING OF CORNFLAKES
     Route: 048
     Dates: start: 20210327, end: 20210327
  69. DIPHENHYDRAMINE HYDROCHLORIDE [Concomitant]
     Active Substance: DIPHENHYDRAMINE HYDROCHLORIDE
     Dates: start: 20210323, end: 20210323
  70. ESTAZOLAM [Concomitant]
     Active Substance: ESTAZOLAM
     Dates: start: 20210324, end: 20210324
  71. GRANULOCYTE COLONY-STIMULATING FACTOR NOS [Concomitant]
     Active Substance: GRANULOCYTE COLONY-STIMULATING FACTOR NOS
     Dosage: DOSE- 150 UG
     Route: 058
     Dates: start: 20210326, end: 20210428
  72. GRANULOCYTE COLONY-STIMULATING FACTOR NOS [Concomitant]
     Active Substance: GRANULOCYTE COLONY-STIMULATING FACTOR NOS
     Dates: start: 20210510, end: 20210510
  73. GRANULOCYTE COLONY-STIMULATING FACTOR NOS [Concomitant]
     Active Substance: GRANULOCYTE COLONY-STIMULATING FACTOR NOS
     Dates: start: 20210626, end: 20210627
  74. PROMETHAZINE HYDROCHLORIDE [Concomitant]
     Active Substance: PROMETHAZINE HYDROCHLORIDE
     Dates: start: 20210328, end: 20210328
  75. THROMBOPOIETIN [Concomitant]
     Active Substance: THROMBOPOIETIN
     Route: 058
     Dates: start: 20210329, end: 20210331
  76. THROMBOPOIETIN [Concomitant]
     Active Substance: THROMBOPOIETIN
     Dates: start: 20210401, end: 20210403
  77. METFORMIN HYDROCHLORIDE [Concomitant]
     Active Substance: METFORMIN HYDROCHLORIDE
     Indication: Blood glucose decreased
     Dates: start: 2013, end: 20210515
  78. GLIMEPIRIDE [Concomitant]
     Active Substance: GLIMEPIRIDE
     Dates: start: 2013
  79. DAPAGLIFLOZIN [Concomitant]
     Active Substance: DAPAGLIFLOZIN
     Indication: Blood glucose decreased
     Dates: start: 20210402
  80. VALSARTAN [Concomitant]
     Active Substance: VALSARTAN
     Dates: start: 20210402, end: 20210403
  81. VALSARTAN [Concomitant]
     Active Substance: VALSARTAN
     Dates: start: 20210407, end: 20210407
  82. COMPOUND LIQUORICE [Concomitant]
     Dates: start: 20210407, end: 20210407
  83. CODEINE PHOSPHATE [Concomitant]
     Active Substance: CODEINE PHOSPHATE
     Dates: start: 20210407, end: 20210407
  84. CODEINE PHOSPHATE [Concomitant]
     Active Substance: CODEINE PHOSPHATE
     Dates: start: 20210409, end: 20210409
  85. ISOSORBIDE MONONITRATE [Concomitant]
     Active Substance: ISOSORBIDE MONONITRATE
     Route: 048
     Dates: start: 20210320, end: 20210320
  86. ISOSORBIDE MONONITRATE [Concomitant]
     Active Substance: ISOSORBIDE MONONITRATE
     Route: 048
     Dates: start: 20210320, end: 20210324
  87. ISOSORBIDE MONONITRATE [Concomitant]
     Active Substance: ISOSORBIDE MONONITRATE
     Dates: start: 20210401
  88. LACTULOSE [Concomitant]
     Active Substance: LACTULOSE
     Route: 048
     Dates: start: 20210318, end: 20210318
  89. ASPIRIN [Concomitant]
     Active Substance: ASPIRIN
     Dates: start: 20210518
  90. ROSUVASTATIN [Concomitant]
     Active Substance: ROSUVASTATIN
     Dates: start: 20210515
  91. BISOPROLOL [Concomitant]
     Active Substance: BISOPROLOL
     Dates: start: 20210518
  92. INSULIN ASPART [Concomitant]
     Active Substance: INSULIN ASPART
     Indication: Blood glucose decreased
     Dates: start: 20210515
  93. INSULIN ASPART [Concomitant]
     Active Substance: INSULIN ASPART
     Indication: Hypoglycaemia
     Dates: start: 20210326, end: 20210329
  94. INSULIN ASPART [Concomitant]
     Active Substance: INSULIN ASPART
     Dates: start: 20210610, end: 20210610
  95. TRIMETAZIDINE DIHYDROCHLORIDE [Concomitant]
     Active Substance: TRIMETAZIDINE DIHYDROCHLORIDE
     Dates: start: 20210518
  96. NICODIL [Concomitant]
     Dates: start: 20210518
  97. OMEPRAZOLE SODIUM [Concomitant]
     Active Substance: OMEPRAZOLE SODIUM
     Dates: start: 20210602, end: 20210602
  98. ERYTHROPOIETIN [Concomitant]
     Active Substance: ERYTHROPOIETIN
     Dates: start: 20210429, end: 20210505
  99. TROPISETRON HYDROCHLORIDE [Concomitant]
     Active Substance: TROPISETRON HYDROCHLORIDE
     Dates: start: 20210608, end: 20210610
  100. DAPAGLIFLOZIN [Concomitant]
     Active Substance: DAPAGLIFLOZIN
     Indication: Blood glucose decreased
     Dates: start: 20210402
  101. IPRATROPIUM BROMIDE [Concomitant]
     Active Substance: IPRATROPIUM BROMIDE
     Dosage: 250 UG
     Route: 055
     Dates: start: 20210315, end: 20210315
  102. NIFEDIPINE [Concomitant]
     Active Substance: NIFEDIPINE
     Indication: Hypotension
     Dates: start: 20210315, end: 20210317
  103. DYPHYLLINE [Concomitant]
     Active Substance: DYPHYLLINE
     Dates: start: 20210610, end: 20210610
  104. INSULIN DETEMIR [Concomitant]
     Active Substance: INSULIN DETEMIR
     Indication: Hypoglycaemia
     Dates: start: 20210326, end: 20210329
  105. PHENERGAN [Concomitant]
     Active Substance: PROMETHAZINE HYDROCHLORIDE
     Indication: Benign prostatic hyperplasia
     Dosage: PILL
     Route: 048
     Dates: start: 20210324, end: 20210324
  106. IRINOTECAN [Concomitant]
     Active Substance: IRINOTECAN
     Indication: Neoplasm malignant
     Dates: start: 20210805, end: 20210812
  107. BIFIDOBACTERIUM BIFIDUM [Concomitant]
     Active Substance: BIFIDOBACTERIUM BIFIDUM
     Dosage: PREVENT BACTERIAL FLORA DISORDER
     Route: 058
     Dates: start: 20210325, end: 20210329
  108. PLATELETS [Concomitant]
     Active Substance: HUMAN PLATELET, ALLOGENIC
     Indication: Platelet count increased
     Route: 058
     Dates: start: 20210328, end: 20210328
  109. AMLODIPINE BESYLATE [Concomitant]
     Active Substance: AMLODIPINE BESYLATE
     Route: 042
     Dates: start: 20210323, end: 20210323

REACTIONS (3)
  - Cardiac failure [Recovered/Resolved]
  - Urinary retention [Recovered/Resolved]
  - Myelosuppression [Recovered/Resolved]

NARRATIVE: CASE EVENT DATE: 20210316
